FAERS Safety Report 4952939-6 (Version None)
Quarter: 2006Q1

REPORT INFORMATION
  Report Type: 
  Country: None (occurrence: None)
  Receive Date: 20060324
  Receipt Date: 20051107
  Transmission Date: 20060701
  Serious: Yes (Other)
  Sender: FDA-Public Use
  Company Number: PHBS2005VE16439

PATIENT
  Age: 55 Year
  Sex: Male
  Weight: 74 kg

DRUGS (3)
  1. ZOMETA [Suspect]
     Indication: MULTIPLE MYELOMA
     Dosage: 4 MG, QMO
     Route: 042
     Dates: start: 20041101, end: 20050915
  2. THALIDOMIDE [Concomitant]
     Dosage: 200 MG/D
     Route: 048
     Dates: start: 20050801, end: 20051101
  3. DEXAMETHASONE TAB [Concomitant]
     Dosage: 20 MG/28 DAYS (DAY 01 AND 04)
     Route: 065

REACTIONS (3)
  - BONE DISORDER [None]
  - OSTEONECROSIS [None]
  - ULCER [None]
